FAERS Safety Report 7687886-2 (Version None)
Quarter: 2011Q3

REPORT INFORMATION
  Report Type: 
  Country: None (occurrence: None)
  Receive Date: 20110817
  Receipt Date: 20110803
  Transmission Date: 20111222
  Serious: Yes (Other)
  Sender: FDA-Public Use
  Company Number: US-CELGENEUS-163-20785-11080610

PATIENT
  Sex: Female
  Weight: 89.892 kg

DRUGS (1)
  1. THALOMID [Suspect]
     Indication: MULTIPLE MYELOMA
     Dosage: 200 MILLIGRAM
     Route: 048
     Dates: start: 20110201

REACTIONS (3)
  - SCHIZOPHRENIA [None]
  - OEDEMA PERIPHERAL [None]
  - URINARY TRACT INFECTION [None]
